FAERS Safety Report 5877372-4 (Version None)
Quarter: 2008Q3

REPORT INFORMATION
  Report Type: 
  Country: None (occurrence: None)
  Receive Date: 20080908
  Receipt Date: 20080827
  Transmission Date: 20090109
  Serious: Yes (Hospitalization)
  Sender: FDA-Public Use
  Company Number: DSA_32266_2008

PATIENT
  Sex: Female

DRUGS (4)
  1. TAVOR /00273201/ (TAVOR - LORAZEPAM) 2 MG (NOT SPECIFIED) [Suspect]
     Dosage: 12 MG 1X NOT THE PRESCRIBED AMOUNT ORAL)
     Route: 048
     Dates: start: 20080827, end: 20080827
  2. DIGOXIN [Suspect]
     Dosage: 10 DF 1X NOT THE PRESCRIBED AMOUNT ORAL)
     Route: 048
     Dates: start: 20080827, end: 20080827
  3. DIGOXIN [Suspect]
     Indication: DRUG USE FOR UNKNOWN INDICATION
     Dosage: DF ORAL
     Route: 048
  4. TEMGESIC /00444001/ (TEMGESIC - BUPRENOPHINE) (NOT SPECIFIED) [Suspect]
     Dosage: 5 DF 1X NOT THE PRESCRIBED AMOUNT ORAL)
     Route: 048
     Dates: start: 20080827, end: 20080827

REACTIONS (4)
  - BRADYCARDIA [None]
  - COMA [None]
  - MULTIPLE DRUG OVERDOSE INTENTIONAL [None]
  - SUICIDE ATTEMPT [None]
